FAERS Safety Report 7581779-7 (Version None)
Quarter: 2011Q2

REPORT INFORMATION
  Report Type: 
  Country: None (occurrence: None)
  Receive Date: 20110629
  Receipt Date: 20110617
  Transmission Date: 20111010
  Serious: Yes (Other)
  Sender: FDA-Public Use
  Company Number: US-ELI_LILLY_AND_COMPANY-US201103008798

PATIENT
  Sex: Female

DRUGS (4)
  1. CALCIUM CARBONATE [Concomitant]
  2. FORTEO [Suspect]
     Dosage: 20 UG, QD
  3. FORTEO [Suspect]
     Indication: OSTEOPOROSIS
     Dosage: 20 UG, QD
     Dates: start: 20110304, end: 20110401
  4. VITAMIN TAB [Concomitant]

REACTIONS (8)
  - ADVERSE EVENT [None]
  - DECREASED ACTIVITY [None]
  - NAUSEA [None]
  - LIMB DISCOMFORT [None]
  - MALAISE [None]
  - LOSS OF CONSCIOUSNESS [None]
  - PAIN [None]
  - LOWER RESPIRATORY TRACT INFECTION [None]
